FAERS Safety Report 13598112 (Version 2)
Quarter: 2017Q2

REPORT INFORMATION
  Report Type: Spontaneous
  Country: US (occurrence: US)
  Receive Date: 20170531
  Receipt Date: 20170621
  Transmission Date: 20170830
  Serious: Yes (Hospitalization, Other)
  Sender: FDA-Public Use
  Company Number: US-BAYER-2017-098201

PATIENT
  Age: 55 Year
  Sex: Female

DRUGS (1)
  1. BETASERON [Suspect]
     Active Substance: INTERFERON BETA-1B
     Dosage: UNK

REACTIONS (13)
  - Pneumonia [None]
  - Incontinence [None]
  - Malaise [None]
  - Pyrexia [None]
  - Adverse event [None]
  - Decreased appetite [None]
  - Injection site indentation [None]
  - Skin lesion [None]
  - Gait disturbance [None]
  - Asthenia [None]
  - Urinary tract infection [None]
  - Sepsis [None]
  - Injection site pain [None]
